FAERS Safety Report 11988827 (Version 9)
Quarter: 2017Q1

REPORT INFORMATION
  Report Type: Spontaneous
  Country: US (occurrence: US)
  Receive Date: 20160202
  Receipt Date: 20170327
  Transmission Date: 20170428
  Serious: Yes (Hospitalization, Other)
  Sender: FDA-Public Use
  Company Number: US-PFIZER INC-2016049674

PATIENT
  Age: 89 Year
  Sex: Female
  Weight: 47 kg

DRUGS (28)
  1. CELEXA [Concomitant]
     Active Substance: CITALOPRAM HYDROBROMIDE
     Dosage: 10 MG, DAILY (1)
  2. COZAAR [Concomitant]
     Active Substance: LOSARTAN POTASSIUM
     Dosage: 25 MG, 2X/DAY
     Route: 065
  3. ALDACTONE [Concomitant]
     Active Substance: SPIRONOLACTONE
     Dosage: 1 DF, 1X/DAY
     Route: 065
  4. TIKOSYN [Interacting]
     Active Substance: DOFETILIDE
     Indication: CORONARY ARTERY DISEASE
     Dosage: 1 DF, 2X/DAY (0.125 MG)  (MORNING AND NIGHT)
     Dates: start: 20151228
  5. ELIQUIS [Interacting]
     Active Substance: APIXABAN
     Dosage: 2.5 MG, 2X/DAY
     Route: 065
     Dates: start: 20150716
  6. CELEXA [Concomitant]
     Active Substance: CITALOPRAM HYDROBROMIDE
     Dosage: UNK (HALF A TABLET DAILY)
  7. VIT. D [Concomitant]
     Dosage: UNK, DAILY (2 DAILY )
  8. TYLENOL [Concomitant]
     Active Substance: ACETAMINOPHEN
     Dosage: 1 DF, PRN
     Route: 065
  9. NITROSTAT [Concomitant]
     Active Substance: NITROGLYCERIN
     Indication: MYOCARDIAL INFARCTION
     Dosage: UNK
     Route: 065
  10. CELEXA [Concomitant]
     Active Substance: CITALOPRAM HYDROBROMIDE
     Dosage: UNK UNK, DAILY  (10 MG 1/2 TAB DAILY)
  11. METOPROLOL. [Concomitant]
     Active Substance: METOPROLOL
     Dosage: 37.5 MG, DAILY
     Route: 065
  12. LOSAR /00661201/ [Concomitant]
     Dosage: 2 DF, 1X/DAY
     Route: 065
  13. CELEX /00145501/ [Concomitant]
     Dosage: 1 DF, 1X/DAY
  14. LASIX [Concomitant]
     Active Substance: FUROSEMIDE
     Indication: SWELLING
     Dosage: 1 DF, AS NEEDED
  15. TIKOSYN [Suspect]
     Active Substance: DOFETILIDE
     Indication: ATRIAL FIBRILLATION
     Dosage: 1 DF, 2X/DAY (0.125 MG)
  16. ELIQUIS [Interacting]
     Active Substance: APIXABAN
     Dosage: 0.125 MG, 2X/DAY
  17. LASIX [Concomitant]
     Active Substance: FUROSEMIDE
     Indication: SWELLING
     Dosage: 40 MG, AS NEEDED
     Route: 065
  18. VITAMIN D3 [Concomitant]
     Active Substance: CHOLECALCIFEROL
     Dosage: 400 MG, UNK
  19. ZETIA [Concomitant]
     Active Substance: EZETIMIBE
     Dosage: UNK
     Route: 065
  20. TIKOSYN [Interacting]
     Active Substance: DOFETILIDE
     Dosage: 0.125 MG, 2X/DAY
  21. LOMOTIL [Concomitant]
     Active Substance: ATROPINE SULFATE\DIPHENOXYLATE HYDROCHLORIDE
     Indication: HYPERSENSITIVITY
     Dosage: 2.5 MG, AS NEEDED
  22. METOPROLOL. [Concomitant]
     Active Substance: METOPROLOL
     Dosage: UNK (HALF A TABLET IN THE MORNING AND ONE TABLET AT NIGHT)
  23. VIT B [Concomitant]
     Active Substance: VITAMIN B
     Dosage: UNK UNK, MONTHLY
     Route: 065
  24. LOSAR /00661201/ [Concomitant]
     Dosage: 2 DF, DAILY
  25. TIKOSYN [Interacting]
     Active Substance: DOFETILIDE
     Indication: CARDIAC DISORDER
     Dosage: 0.125 MG, 2X/DAY (MORNING AND NIGHT))
     Dates: start: 201512
  26. ALDACTONE [Concomitant]
     Active Substance: SPIRONOLACTONE
     Dosage: 1 DF, DAILY
  27. CELEX /00145501/ [Concomitant]
     Dosage: 10 MG, 1X/DAY
  28. LOMOTIL [Concomitant]
     Active Substance: ATROPINE SULFATE\DIPHENOXYLATE HYDROCHLORIDE
     Dosage: 1 DF, AS NEEDED

REACTIONS (10)
  - Intentional product misuse [Unknown]
  - Visual impairment [Unknown]
  - Eye haemorrhage [Recovered/Resolved]
  - Ear haemorrhage [Recovered/Resolved]
  - Fall [Unknown]
  - Eye pruritus [Recovered/Resolved]
  - Internal haemorrhage [Recovering/Resolving]
  - Myocardial infarction [Unknown]
  - Drug interaction [Unknown]
  - Epistaxis [Unknown]

NARRATIVE: CASE EVENT DATE: 20151130
